FAERS Safety Report 8218241-4 (Version None)
Quarter: 2012Q1

REPORT INFORMATION
  Report Type: 
  Country: None (occurrence: None)
  Receive Date: 20120319
  Receipt Date: 20120308
  Transmission Date: 20120608
  Serious: Yes (Other)
  Sender: FDA-Public Use
  Company Number: ES-TEVA-327098ISR

PATIENT
  Age: 84 Year
  Sex: Male

DRUGS (12)
  1. STALEVO 100 [Concomitant]
     Indication: PARKINSON'S DISEASE
     Dosage: 300 MILLIGRAM;
     Route: 048
     Dates: end: 20120223
  2. SINEMET [Concomitant]
     Indication: PARKINSON'S DISEASE
     Dosage: 50/200MG
     Route: 048
     Dates: end: 20120223
  3. LOSARTAN POTASSIUM [Concomitant]
     Indication: HYPERTENSION
     Route: 048
     Dates: end: 20120223
  4. LORAZEPAM [Concomitant]
     Dosage: 2 MILLIGRAM;
     Dates: end: 20120223
  5. ACETAMINOPHEN [Concomitant]
     Dates: end: 20120223
  6. AZILECT [Suspect]
     Indication: PARKINSON'S DISEASE
     Dosage: 1 MILLIGRAM;
     Route: 048
     Dates: start: 20110201, end: 20120223
  7. LEUPROLIDE ACETATE [Concomitant]
     Indication: PROSTATIC DISORDER
     Dates: end: 20120223
  8. MORPHINE [Interacting]
     Indication: ANAESTHESIA
     Route: 037
     Dates: start: 20120224, end: 20120224
  9. MIDAZOLAM [Interacting]
     Indication: ANAESTHESIA
     Route: 042
     Dates: start: 20120224, end: 20120224
  10. ESCITALOPRAM [Concomitant]
     Indication: DEPRESSION
     Dosage: 5 MILLIGRAM;
     Route: 048
     Dates: end: 20120223
  11. FENTANYL CITRATE [Interacting]
     Indication: ANAESTHESIA
     Dates: start: 20120224, end: 20120224
  12. PANTOPRAZOLE [Concomitant]
     Dosage: 40 MILLIGRAM;
     Dates: end: 20120223

REACTIONS (3)
  - HYPERTENSIVE CRISIS [None]
  - ALTERED STATE OF CONSCIOUSNESS [None]
  - DRUG INTERACTION [None]
